FAERS Safety Report 4361039-8 (Version None)
Quarter: 2004Q2

REPORT INFORMATION
  Report Type: 
  Country: None (occurrence: None)
  Receive Date: 20040517
  Receipt Date: 20030918
  Transmission Date: 20050107
  Serious: Yes (Hospitalization)
  Sender: FDA-Public Use
  Company Number: 2003-106481-NL

PATIENT
  Age: 43 Year
  Sex: Female

DRUGS (5)
  1. MIRTAZAPINE [Suspect]
     Indication: DEPRESSION
     Dosage: 30 MG, ORAL
     Route: 048
     Dates: end: 20030224
  2. LORAZEPAM [Concomitant]
  3. CONJUGATED ESTROGEN [Concomitant]
  4. ACETAMINOPHEN [Concomitant]
  5. ZOPICLONE [Concomitant]

REACTIONS (3)
  - CHOLESTASIS [None]
  - DIARRHOEA [None]
  - HEPATITIS [None]
